FAERS Safety Report 20214229 (Version 5)
Quarter: 2022Q1

REPORT INFORMATION
  Report Type: Spontaneous
  Country: AT (occurrence: AT)
  Receive Date: 20211221
  Receipt Date: 20220206
  Transmission Date: 20220423
  Serious: Yes (Life-Threatening, Hospitalization, Other)
  Sender: FDA-Public Use
  Company Number: AT-BRISTOL-MYERS SQUIBB COMPANY-BMS-2021-137282

PATIENT
  Age: 68 Year
  Sex: Male
  Weight: 52 kg

DRUGS (6)
  1. OPDIVO [Suspect]
     Active Substance: NIVOLUMAB
     Indication: Pleural mesothelioma malignant
     Dosage: 360 MILLIGRAM
     Route: 042
     Dates: start: 20211103, end: 20211103
  2. OPDIVO [Suspect]
     Active Substance: NIVOLUMAB
     Dosage: 360 MILLIGRAM
     Route: 042
     Dates: start: 20211123, end: 20211123
  3. YERVOY [Suspect]
     Active Substance: IPILIMUMAB
     Indication: Pleural mesothelioma malignant
     Dosage: 52.7MG (1 MG/KG)
     Route: 042
     Dates: start: 20211103, end: 20211103
  4. YERVOY [Suspect]
     Active Substance: IPILIMUMAB
     Dosage: 1 MILLIGRAM/KILOGRAM, Q42
     Route: 042
  5. COVID-19 VACCINE [Concomitant]
     Indication: Immunisation
     Dosage: 3RD DOSE IN EARLY DEC-2021
     Route: 065
  6. SODIUM CHLORIDE [Concomitant]
     Active Substance: SODIUM CHLORIDE
     Indication: Product used for unknown indication
     Dosage: UNK
     Route: 065
     Dates: start: 20211103, end: 20211123

REACTIONS (7)
  - Neutropenia [Not Recovered/Not Resolved]
  - Condition aggravated [Unknown]
  - Malignant neoplasm progression [Unknown]
  - Hypothyroidism [Unknown]
  - Inflammation [Unknown]
  - Anaemia [Unknown]
  - Intentional product use issue [Unknown]

NARRATIVE: CASE EVENT DATE: 20211116
